FAERS Safety Report 6786160-6 (Version None)
Quarter: 2010Q2

REPORT INFORMATION
  Report Type: 
  Country: None (occurrence: None)
  Receive Date: 20100622
  Receipt Date: 20100622
  Transmission Date: 20101027
  Serious: Yes (Other)
  Sender: FDA-Public Use
  Company Number: None

PATIENT
  Age: 48 Year
  Sex: Female
  Weight: 72.5755 kg

DRUGS (1)
  1. CYMBALTA [Suspect]
     Indication: CONVULSION
     Dosage: EVERY DAY ONCE PO
     Route: 048

REACTIONS (3)
  - CONVULSION [None]
  - DEPRESSION [None]
  - PAIN [None]
